FAERS Safety Report 7238229-X (Version None)
Quarter: 2011Q1

REPORT INFORMATION
  Report Type: 
  Country: None (occurrence: None)
  Receive Date: 20110121
  Receipt Date: 20110118
  Transmission Date: 20110831
  Serious: Yes (Other)
  Sender: FDA-Public Use
  Company Number: US-PFIZER INC-2011012913

PATIENT
  Sex: Female

DRUGS (2)
  1. CELEXA [Concomitant]
  2. CELEBREX [Suspect]
     Dosage: UNK

REACTIONS (1)
  - HYPONATRAEMIA [None]
